FAERS Safety Report 11518204 (Version 2)
Quarter: 2015Q4

REPORT INFORMATION
  Report Type: Spontaneous
  Country: CN (occurrence: CN)
  Receive Date: 20150917
  Receipt Date: 20151015
  Transmission Date: 20160304
  Serious: Yes (Hospitalization)
  Sender: FDA-Public Use
  Company Number: CN-GILEAD-2015-0172000

PATIENT
  Age: 30 Year
  Sex: Female

DRUGS (2)
  1. ENTECAVIR. [Concomitant]
     Active Substance: ENTECAVIR
     Indication: CHRONIC HEPATITIS B
     Dosage: UNK
     Route: 048
     Dates: end: 20150825
  2. VIREAD [Suspect]
     Active Substance: TENOFOVIR DISOPROXIL FUMARATE
     Indication: CHRONIC HEPATITIS B
     Dosage: 300 MG, QD
     Route: 048
     Dates: start: 20150825

REACTIONS (11)
  - Myositis [Unknown]
  - Blood cholesterol increased [Not Recovered/Not Resolved]
  - Asthenia [Not Recovered/Not Resolved]
  - Blood glucose increased [Recovered/Resolved]
  - Red blood cell sedimentation rate increased [Recovering/Resolving]
  - Pharyngitis [Recovered/Resolved]
  - Unevaluable event [Not Recovered/Not Resolved]
  - Myalgia [Recovering/Resolving]
  - Blood triglycerides increased [Not Recovered/Not Resolved]
  - Rheumatoid factor increased [Recovering/Resolving]
  - Unevaluable event [Recovered/Resolved]

NARRATIVE: CASE EVENT DATE: 2015
